FAERS Safety Report 5576664-6 (Version None)
Quarter: 2007Q4

REPORT INFORMATION
  Report Type: 
  Country: None (occurrence: None)
  Receive Date: 20071228
  Receipt Date: 20071220
  Transmission Date: 20080405
  Serious: Yes (Hospitalization, Disabling)
  Sender: FDA-Public Use
  Company Number: JP-MERCK-0712USA08485

PATIENT
  Age: 53 Year
  Sex: Male

DRUGS (5)
  1. COZAAR [Suspect]
     Indication: HYPERTENSION
     Route: 048
  2. CONIEL [Concomitant]
     Indication: HYPERTENSION
     Route: 048
  3. ADALAT [Concomitant]
     Indication: HYPERTENSION
     Route: 048
  4. LASIX [Concomitant]
     Route: 048
  5. PERDIPINE [Concomitant]
     Indication: HYPERTENSION
     Route: 065

REACTIONS (2)
  - CARDIAC FAILURE [None]
  - RENAL FAILURE [None]
